FAERS Safety Report 4399903-6 (Version None)
Quarter: 2004Q3

REPORT INFORMATION
  Report Type: 
  Country: None (occurrence: None)
  Receive Date: 20040714
  Receipt Date: 20040712
  Transmission Date: 20050211
  Serious: Yes (Other)
  Sender: FDA-Public Use
  Company Number: 200410011BFR

PATIENT
  Age: 60 Year
  Sex: Male

DRUGS (2)
  1. IZILOX (MOXIFLOXACIN HYDROCHLORIDE) [Suspect]
     Indication: SINUSITIS
     Dosage: 400 MG, TOTAL DAILY, ORAL
     Route: 048
     Dates: start: 20031112, end: 20031115
  2. AMBROXOL [Concomitant]

REACTIONS (2)
  - CEREBRAL ISCHAEMIA [None]
  - DIPLOPIA [None]
